FAERS Safety Report 7347990-5 (Version None)
Quarter: 2011Q1

REPORT INFORMATION
  Report Type: 
  Country: None (occurrence: None)
  Receive Date: 20110311
  Receipt Date: 20110228
  Transmission Date: 20110831
  Serious: Yes (Other)
  Sender: FDA-Public Use
  Company Number: PHHY2011US10056

PATIENT
  Sex: Male

DRUGS (2)
  1. EXFORGE HCT [Suspect]
     Dosage: 1 DF, QD
     Route: 048
  2. TEKTURNA [Suspect]
     Dosage: 1 DF, QD
     Route: 048

REACTIONS (3)
  - HEART RATE INCREASED [None]
  - BLOOD ELECTROLYTES ABNORMAL [None]
  - PALPITATIONS [None]
